FAERS Safety Report 18554900 (Version 1)
Quarter: 2020Q4

REPORT INFORMATION
  Report Type: Spontaneous
  Country: BE (occurrence: BE)
  Receive Date: 20201127
  Receipt Date: 20201127
  Transmission Date: 20210114
  Serious: Yes (Other)
  Sender: FDA-Public Use
  Company Number: ALC2020BE009275

PATIENT

DRUGS (10)
  1. POLYHEXAMETHYLENE BIGUANIDE HYDROCHLORIDE [Suspect]
     Active Substance: POLIHEXANIDE HYDROCHLORIDE
     Indication: ACANTHAMOEBA KERATITIS
     Dosage: ONCE EVERY HOUR FOR FIRST 24 HRS
     Route: 065
  2. AMPHOTERICIN B. [Suspect]
     Active Substance: AMPHOTERICIN B
     Indication: ACANTHAMOEBA KERATITIS
     Dosage: 6 TIMES A DAY
     Route: 065
  3. ITRACONAZOLE. [Suspect]
     Active Substance: ITRACONAZOLE
     Indication: ACANTHAMOEBA KERATITIS
     Dosage: 100 MG
     Route: 048
  4. DESOMEDINE [Suspect]
     Active Substance: HEXAMIDINE DIISETHIONATE
     Indication: ACANTHAMOEBA KERATITIS
     Dosage: 0.1 %
     Route: 048
  5. ATROPINE ALCON 1% [Suspect]
     Active Substance: ATROPINE
     Indication: ACANTHAMOEBA KERATITIS
     Dosage: UNK, BID
     Route: 065
  6. CHLORHEXIDINE [Suspect]
     Active Substance: CHLORHEXIDINE
     Indication: ACANTHAMOEBA KERATITIS
     Route: 065
  7. ACYCLOVIR [ACICLOVIR SODIUM] [Suspect]
     Active Substance: ACYCLOVIR
     Indication: ACANTHAMOEBA KERATITIS
     Route: 048
  8. POLYHEXAMETHYLENE BIGUANIDE HYDROCHLORIDE [Suspect]
     Active Substance: POLIHEXANIDE HYDROCHLORIDE
     Dosage: SIX TIMES A DAY
     Route: 048
  9. PROPAMIDINE ISETIONATE [Suspect]
     Active Substance: PROPAMIDINE ISETHIONATE
     Indication: ACANTHAMOEBA KERATITIS
     Dosage: ONCE EVERY HOUR FOR FIRST 24 HRS
     Route: 065
  10. MOXIFLOXACINE [Suspect]
     Active Substance: MOXIFLOXACIN
     Indication: ACANTHAMOEBA KERATITIS
     Dosage: SIX TIMES A DAY
     Route: 065

REACTIONS (12)
  - Anterior chamber inflammation [Unknown]
  - Keratic precipitates [Unknown]
  - Muscular weakness [Unknown]
  - Corneal oedema [Unknown]
  - Blood lactate dehydrogenase increased [Unknown]
  - Muscle atrophy [Unknown]
  - Osteonecrosis [Unknown]
  - Pulmonary mass [Unknown]
  - Anaemia [Unknown]
  - Scleritis [Not Recovered/Not Resolved]
  - Corneal epithelium defect [Unknown]
  - Myopathy [Unknown]
